FAERS Safety Report 16381679 (Version 1)
Quarter: 2019Q2

REPORT INFORMATION
  Report Type: Spontaneous
  Country: JP (occurrence: JP)
  Receive Date: 20190603
  Receipt Date: 20190603
  Transmission Date: 20190711
  Serious: Yes (Death)
  Sender: FDA-Public Use
  Company Number: JP-ASTELLAS-2019US022980

PATIENT
  Age: 75 Year
  Sex: Male

DRUGS (2)
  1. FUNGUARD [Concomitant]
     Active Substance: MICAFUNGIN SODIUM
     Indication: PRODUCT USED FOR UNKNOWN INDICATION
     Dosage: UNK UNK, UNKNOWN FREQ.
     Route: 065
  2. AMBISOME [Suspect]
     Active Substance: AMPHOTERICIN B
     Indication: MIKULICZ^S DISEASE
     Route: 041
     Dates: start: 201905, end: 201905

REACTIONS (1)
  - Mikulicz^s disease [Fatal]

NARRATIVE: CASE EVENT DATE: 201905
